FAERS Safety Report 6128380-X (Version None)
Quarter: 2009Q1

REPORT INFORMATION
  Report Type: 
  Country: None (occurrence: None)
  Receive Date: 20090323
  Receipt Date: 20081222
  Transmission Date: 20090719
  Serious: No
  Sender: FDA-Public Use
  Company Number: US-ABBOTT-08P-163-0494205-00

PATIENT
  Sex: Female
  Weight: 78.088 kg

DRUGS (6)
  1. ERYTHROMYCIN ETHYLSUCCINATE [Suspect]
     Indication: ANTI-INFECTIVE THERAPY
     Dosage: PER TEASPOONFUL
     Route: 048
     Dates: start: 19930101
  2. ERYTHROMYCIN ETHYLSUCCINATE [Suspect]
  3. ASPIRIN [Concomitant]
     Indication: DRUG USE FOR UNKNOWN INDICATION
     Route: 048
  4. THYROID TAB [Concomitant]
     Indication: THYROIDECTOMY
     Route: 048
  5. NORVASC [Concomitant]
     Indication: HYPERTENSION
     Route: 048
  6. TUMS [Concomitant]
     Indication: GASTROOESOPHAGEAL REFLUX DISEASE

REACTIONS (3)
  - BLOOD URINE PRESENT [None]
  - COUGH [None]
  - TOOTHACHE [None]
